FAERS Safety Report 8439121-5 (Version None)
Quarter: 2012Q2

REPORT INFORMATION
  Report Type: 
  Country: None (occurrence: None)
  Receive Date: 20120615
  Receipt Date: 20120605
  Transmission Date: 20120825
  Serious: Yes (Other)
  Sender: FDA-Public Use
  Company Number: CN-JNJFOC-20120606247

PATIENT

DRUGS (5)
  1. RISPERIDONE [Suspect]
     Route: 048
  2. PALIPERIDONE ER [Suspect]
     Indication: SCHIZOPHRENIA
     Route: 048
  3. RISPERIDONE [Suspect]
     Indication: SCHIZOPHRENIA
     Route: 048
  4. PALIPERIDONE ER [Suspect]
     Route: 048
  5. RISPERIDONE [Suspect]
     Route: 048

REACTIONS (1)
  - AMAUROSIS [None]
